FAERS Safety Report 18868866 (Version 1)
Quarter: 2021Q1

REPORT INFORMATION
  Report Type: Report from Study
  Country: CA (occurrence: CA)
  Receive Date: 20210209
  Receipt Date: 20210209
  Transmission Date: 20210420
  Serious: Yes (Other)
  Sender: FDA-Public Use
  Company Number: CA-JNJFOC-20210205813

PATIENT
  Age: 66 Year
  Sex: Male
  Weight: 73.55 kg

DRUGS (18)
  1. COD LIVER OIL [Concomitant]
     Active Substance: COD LIVER OIL
     Indication: SUPPLEMENTATION THERAPY
     Route: 048
     Dates: start: 20200301
  2. ROYAL JELLY [Concomitant]
     Active Substance: ROYAL JELLY
     Indication: SUPPLEMENTATION THERAPY
     Route: 048
     Dates: start: 20200301
  3. TURKEY TAIL [Concomitant]
     Indication: SUPPLEMENTATION THERAPY
     Route: 048
     Dates: start: 20200301
  4. VITAMIN D [ERGOCALCIFEROL] [Concomitant]
     Active Substance: ERGOCALCIFEROL
     Indication: SUPPLEMENTATION THERAPY
     Route: 048
     Dates: start: 20200301
  5. ROPIVACAINE. [Concomitant]
     Active Substance: ROPIVACAINE HYDROCHLORIDE
     Indication: PROSTATE CANCER
     Route: 030
     Dates: start: 20210125, end: 20210125
  6. ELIGARD [Suspect]
     Active Substance: LEUPROLIDE ACETATE
     Indication: PROSTATE CANCER
     Route: 058
     Dates: start: 20200811, end: 20210125
  7. L?LYSINE [LYSINE] [Concomitant]
     Indication: SUPPLEMENTATION THERAPY
     Route: 048
     Dates: start: 20200301
  8. SELENOMETHIONINE. [Concomitant]
     Active Substance: SELENOMETHIONINE
     Indication: SUPPLEMENTATION THERAPY
     Route: 048
     Dates: start: 20200301
  9. COLLAGEN [Concomitant]
     Active Substance: COLLAGEN
     Indication: SUPPLEMENTATION THERAPY
     Dosage: 0.5 TEASPOON
     Route: 048
     Dates: start: 20200301
  10. HYDROMORPHONE [Concomitant]
     Active Substance: HYDROMORPHONE
     Indication: PAIN MANAGEMENT
     Route: 042
     Dates: start: 20210125
  11. PLACEBO [Suspect]
     Active Substance: UNSPECIFIED INGREDIENT
     Indication: PROSTATE CANCER
     Route: 048
     Dates: start: 20200811, end: 20210124
  12. CHAGA [Concomitant]
     Indication: SUPPLEMENTATION THERAPY
     Route: 048
     Dates: start: 20200301
  13. ACETAMINOPHEN. [Concomitant]
     Active Substance: ACETAMINOPHEN
     Indication: PAIN MANAGEMENT
     Route: 048
     Dates: start: 20210125
  14. QUERCETIN [Concomitant]
     Active Substance: QUERCETIN
     Indication: SUPPLEMENTATION THERAPY
     Route: 048
     Dates: start: 20200301
  15. TART CHERRY [Concomitant]
     Indication: SUPPLEMENTATION THERAPY
     Route: 048
     Dates: start: 20200301
  16. DEGLYCYRRHIZED LICORICE [Concomitant]
     Indication: SUPPLEMENTATION THERAPY
     Route: 048
     Dates: start: 20200301
  17. OLIVE LEAF EXTRACT [Concomitant]
     Indication: SUPPLEMENTATION THERAPY
     Route: 048
     Dates: start: 20200301
  18. ELDERBERRY [SAMBUCUS NIGRA] [Concomitant]
     Indication: SUPPLEMENTATION THERAPY
     Route: 048
     Dates: start: 20200301

REACTIONS (1)
  - Pulmonary embolism [Not Recovered/Not Resolved]

NARRATIVE: CASE EVENT DATE: 20210126
